FAERS Safety Report 25199524 (Version 2)
Quarter: 2025Q2

REPORT INFORMATION
  Report Type: Spontaneous
  Country: MY (occurrence: MY)
  Receive Date: 20250415
  Receipt Date: 20250421
  Transmission Date: 20250717
  Serious: Yes (Other)
  Sender: OTSUKA
  Company Number: MY-MMM-Otsuka-82HQKA10

PATIENT

DRUGS (1)
  1. SAMSCA [Suspect]
     Active Substance: TOLVAPTAN
     Indication: Product used for unknown indication
     Dosage: 15 MG, QD (FOR 3 DAYS)
     Route: 065

REACTIONS (3)
  - Delirium [Unknown]
  - Cardiac failure [Unknown]
  - Hypernatraemia [Unknown]
